FAERS Safety Report 4971616-9 (Version None)
Quarter: 2006Q2

REPORT INFORMATION
  Report Type: 
  Country: None (occurrence: None)
  Receive Date: 20060413
  Receipt Date: 20060404
  Transmission Date: 20061013
  Serious: Yes (Hospitalization)
  Sender: FDA-Public Use
  Company Number: JP-JNJFOC-20060304127

PATIENT
  Age: 78 Year
  Sex: Male

DRUGS (11)
  1. OFLOCET [Suspect]
     Indication: DRUG USE FOR UNKNOWN INDICATION
     Route: 048
     Dates: start: 20060129, end: 20060209
  2. PREVISCAN [Interacting]
     Indication: DRUG USE FOR UNKNOWN INDICATION
     Route: 048
     Dates: end: 20060129
  3. COAPROVEL [Concomitant]
  4. COAPROVEL [Concomitant]
  5. FONZYLANE [Concomitant]
  6. AMLOR [Concomitant]
  7. CELECTOL [Concomitant]
  8. SPECIAFOLDINE [Concomitant]
  9. STILNOX [Concomitant]
  10. RIFADIN [Concomitant]
  11. ARIXTRA [Concomitant]
     Dates: end: 20060129

REACTIONS (6)
  - DIVERTICULUM [None]
  - DRUG INTERACTION [None]
  - DUODENITIS [None]
  - HAEMATOCHEZIA [None]
  - INTERNATIONAL NORMALISED RATIO INCREASED [None]
  - PROTHROMBIN TIME SHORTENED [None]
